FAERS Safety Report 18497756 (Version 1)
Quarter: 2020Q4

REPORT INFORMATION
  Report Type: Report from Study
  Country: US (occurrence: US)
  Receive Date: 20201112
  Receipt Date: 20201112
  Transmission Date: 20210114
  Serious: Yes (Other)
  Sender: FDA-Public Use
  Company Number: US-EDGE PHARMA LLC-2095876

PATIENT

DRUGS (1)
  1. VANCOMYCIN HYDROCHLORIDE 1.25 GM [Suspect]
     Active Substance: VANCOMYCIN HYDROCHLORIDE
     Indication: PNEUMONIA STAPHYLOCOCCAL
     Route: 041

REACTIONS (1)
  - Product label issue [Recovered/Resolved]

NARRATIVE: CASE EVENT DATE: 20200702
